FAERS Safety Report 8572049-9 (Version None)
Quarter: 2012Q3

REPORT INFORMATION
  Report Type: 
  Country: None (occurrence: None)
  Receive Date: 20120806
  Receipt Date: 20120726
  Transmission Date: 20120928
  Serious: Yes (Other)
  Sender: FDA-Public Use
  Company Number: JP-SANOFI-AVENTIS-2012SA055444

PATIENT
  Age: 47 Year
  Sex: Male

DRUGS (5)
  1. DESYREL [Concomitant]
  2. ZOLPIDEM [Suspect]
     Route: 048
  3. PAXIL [Concomitant]
  4. MIRTAZAPINE [Concomitant]
  5. SEROQUEL [Suspect]
     Route: 048

REACTIONS (1)
  - DIABETES MELLITUS [None]
